FAERS Safety Report 10237212 (Version 1)
Quarter: 2014Q1

REPORT INFORMATION
  Report Type: Spontaneous
  Country: US (occurrence: None)
  Receive Date: 20140306
  Receipt Date: 20140306
  Transmission Date: 20141002
  Serious: Yes (Other)
  Sender: FDA-Public Use
  Company Number: 163-21880-13050288

PATIENT
  Age: 69 Year
  Sex: Male

DRUGS (9)
  1. REVLIMID [Suspect]
     Indication: MYELODYSPLASTIC SYNDROME
     Dosage: 5 MG, 28 IN 28 D, PO
     Route: 048
     Dates: start: 20111201
  2. ARANESP (DARBEPOTIN ALFA) (UNKNOWN) [Concomitant]
  3. ASPIRIN (ACETYLSALICYLIC ACID) (UNKNOWN) (ACETYLSALICYLIC ACID) [Concomitant]
  4. COREG (CARVEDILOL) (UNKNOWN) [Concomitant]
  5. EXJADE (DEFERASIROX) (UNKNOWN) [Concomitant]
  6. FLUOCINOLONE ACETONIDE (FLUOCINOLONE ACITONIDE) (UNKNOWN) [Concomitant]
  7. FOLIC ACID (FOLIC ACID) (UNKNOWN) [Concomitant]
  8. HYDROCHLOROTHIAZIDE (HYDROCHLOROTHIAZIDE) (UNKNOWN) [Concomitant]
  9. ISOSORBIDE MONONITRATE (ISOSORBIDE MONONITRATE) [Concomitant]

REACTIONS (1)
  - Anaemia [None]
